FAERS Safety Report 6918578-2 (Version None)
Quarter: 2010Q3

REPORT INFORMATION
  Report Type: 
  Country: None (occurrence: None)
  Receive Date: 20100811
  Receipt Date: 20100601
  Transmission Date: 20110219
  Serious: No
  Sender: FDA-Public Use
  Company Number: US-ABBOTT-10P-163-0648996-00

PATIENT
  Sex: Male

DRUGS (7)
  1. NORVIR [Suspect]
     Indication: HIV INFECTION
     Dates: start: 20100501, end: 20100528
  2. LEXIVA [Concomitant]
     Indication: PRODUCT USED FOR UNKNOWN INDICATION
  3. TRUVADA [Concomitant]
     Indication: PRODUCT USED FOR UNKNOWN INDICATION
  4. LAMOTIL [Concomitant]
     Indication: PRODUCT USED FOR UNKNOWN INDICATION
  5. ENGERIX-B [Concomitant]
     Indication: HEPATITIS B
     Route: 050
  6. NORVIR [Concomitant]
     Indication: HIV INFECTION
     Dates: start: 20100201, end: 20100501
  7. NORVIR [Concomitant]
     Dates: start: 20100529

REACTIONS (1)
  - DIARRHOEA [None]
